FAERS Safety Report 7093231-6 (Version None)
Quarter: 2010Q4

REPORT INFORMATION
  Report Type: 
  Country: None (occurrence: None)
  Receive Date: 20101110
  Receipt Date: 20101104
  Transmission Date: 20110411
  Serious: Yes (Death, Other)
  Sender: FDA-Public Use
  Company Number: JP-BAYER-200911475BYL

PATIENT
  Age: 69 Year
  Sex: Male
  Weight: 84 kg

DRUGS (11)
  1. NEXAVAR [Suspect]
     Indication: RENAL CELL CARCINOMA
     Dosage: TOTAL DAILY DOSE: 400 MG  UNIT DOSE: 200 MG
     Route: 048
     Dates: start: 20080424, end: 20090619
  2. NEXAVAR [Suspect]
     Dosage: UNIT DOSE: 200 MG
     Route: 048
     Dates: start: 20080407, end: 20090424
  3. NEXAVAR [Suspect]
     Dosage: UNIT DOSE: 200 MG
     Route: 048
     Dates: start: 20081127, end: 20090407
  4. NEXAVAR [Suspect]
     Dosage: UNIT DOSE: 200 MG
     Route: 048
     Dates: start: 20081008, end: 20081126
  5. ALOSITOL [Concomitant]
     Route: 048
     Dates: start: 20080411
  6. FLIVAS [Concomitant]
     Route: 048
     Dates: start: 20080411
  7. 8-HOUR BAYER [Concomitant]
     Dosage: UNIT DOSE: 100 MG
     Route: 048
     Dates: start: 20080512
  8. RENIVACE [Concomitant]
     Indication: HYPERTENSION
     Route: 048
     Dates: start: 20080827, end: 20081019
  9. RENIVACE [Concomitant]
     Route: 048
     Dates: start: 20081020
  10. DUROTEP [Concomitant]
     Route: 062
     Dates: start: 20080912
  11. LOCOID [Concomitant]
     Indication: PROPHYLAXIS
     Route: 061
     Dates: start: 20080827

REACTIONS (6)
  - HEPATIC FUNCTION ABNORMAL [None]
  - HYPERTENSION [None]
  - PALMAR-PLANTAR ERYTHRODYSAESTHESIA SYNDROME [None]
  - RENAL CELL CARCINOMA [None]
  - STOMATITIS [None]
  - WOUND INFECTION BACTERIAL [None]
